FAERS Safety Report 4700271-8 (Version None)
Quarter: 2005Q2

REPORT INFORMATION
  Report Type: 
  Country: None (occurrence: None)
  Receive Date: 20050627
  Receipt Date: 20050620
  Transmission Date: 20051028
  Serious: Yes (Other)
  Sender: FDA-Public Use
  Company Number: PHFR2005GB02196

PATIENT
  Age: 11 Year
  Sex: Female

DRUGS (2)
  1. METHYLPHENIDATE HCL [Suspect]
     Indication: ATTENTION DEFICIT/HYPERACTIVITY DISORDER
     Dosage: 15MG/DAY
     Route: 048
     Dates: start: 20030801, end: 20050511
  2. MELATONIN [Concomitant]
     Indication: INSOMNIA
     Dosage: 3MG/NOCTE
     Route: 048
     Dates: start: 20040701

REACTIONS (1)
  - HALLUCINATIONS, MIXED [None]
